FAERS Safety Report 11031018 (Version 1)
Quarter: 2015Q2

REPORT INFORMATION
  Report Type: Spontaneous
  Country: GB (occurrence: None)
  Receive Date: 20150413
  Receipt Date: 20150413
  Transmission Date: 20150821
  Serious: Yes (Hospitalization)
  Sender: FDA-Public Use
  Company Number: GB2015K1652SPO

PATIENT
  Age: 66 Year
  Sex: Female
  Weight: 72 kg

DRUGS (7)
  1. CODEINE PHOSPHATE (CODEINE) [Concomitant]
  2. SALBUTAMOL [Concomitant]
     Active Substance: ALBUTEROL
  3. CLENIL MODULITE (BECLOMETASONE DIPROPIONATE) [Concomitant]
  4. ESTRIOL (OESTRIOL) [Concomitant]
  5. LANSOPRAZOLE GENERIC (LANSOPRAZOLE) UNKNOWN [Suspect]
     Active Substance: LANSOPRAZOLE
     Dates: start: 20150323
  6. AMITRIPTYLINE HYDROCHLORIDE (AMITRIPTYLINE) [Concomitant]
  7. LEVOTHYROXINE [Concomitant]
     Active Substance: LEVOTHYROXINE

REACTIONS (1)
  - Hepatitis [None]

NARRATIVE: CASE EVENT DATE: 20150323
